FAERS Safety Report 8343127-4 (Version None)
Quarter: 2012Q2

REPORT INFORMATION
  Report Type: 
  Country: None (occurrence: None)
  Receive Date: 20120504
  Receipt Date: 20120504
  Transmission Date: 20120825
  Serious: No
  Sender: FDA-Public Use
  Company Number: None

PATIENT
  Sex: Female

DRUGS (1)
  1. TOPAMAX SPRINKLE [Suspect]

REACTIONS (3)
  - CONVULSION [None]
  - VOMITING [None]
  - PRODUCT SUBSTITUTION ISSUE [None]
